FAERS Safety Report 9269591 (Version 2)
Quarter: 2013Q3

REPORT INFORMATION
  Report Type: Spontaneous
  Country: US (occurrence: US)
  Receive Date: 20130503
  Receipt Date: 20130906
  Transmission Date: 20140515
  Serious: Yes (Other)
  Sender: FDA-Public Use
  Company Number: US-NOVOPROD-376703

PATIENT
  Age: 13 Year
  Sex: Male
  Weight: 37.6 kg

DRUGS (2)
  1. NORDITROPIN FLEXPRO 10 MG/ML [Suspect]
     Indication: HYPOPITUITARISM
     Dosage: 1.9 MG, QD FOR 6 DAYS
     Route: 058
     Dates: start: 201201
  2. LAMICTAL [Concomitant]
     Indication: CONVULSION
     Route: 048

REACTIONS (1)
  - Convulsion [Not Recovered/Not Resolved]
